FAERS Safety Report 6374747-4 (Version None)
Quarter: 2009Q3

REPORT INFORMATION
  Report Type: 
  Country: None (occurrence: None)
  Receive Date: 20090924
  Receipt Date: 20090915
  Transmission Date: 20100115
  Serious: Yes (Hospitalization, Other)
  Sender: FDA-Public Use
  Company Number: PHHY2008AU18050

PATIENT
  Sex: Male

DRUGS (2)
  1. CLOZARIL [Suspect]
     Dosage: 1000 MG
     Dates: start: 19980702, end: 20090825
  2. ZUCLOPENTHIXOL [Concomitant]
     Dosage: UNK

REACTIONS (6)
  - HEPATITIS C [None]
  - LYMPHOCYTOSIS [None]
  - NEUTROPENIA [None]
  - PANCYTOPENIA [None]
  - TUBERCULOSIS [None]
  - WHITE BLOOD CELL COUNT DECREASED [None]
